FAERS Safety Report 7318341-7 (Version None)
Quarter: 2011Q1

REPORT INFORMATION
  Report Type: 
  Country: None (occurrence: None)
  Receive Date: 20110218
  Receipt Date: 20110218
  Transmission Date: 20110831
  Serious: Yes (Hospitalization)
  Sender: FDA-Public Use
  Company Number: None

PATIENT
  Age: 47 Year
  Sex: Female

DRUGS (4)
  1. M.V.I. [Concomitant]
  2. PROZAC [Concomitant]
  3. ETHINYL ESTRADIOL /ETONOGESTREL (NAVALOG) [Suspect]
     Indication: CONTRACEPTION
     Dosage: ONE ONCE INTRAVAG. RECENT (X 1 1/2 MO.)
  4. ZYRTEC [Concomitant]

REACTIONS (2)
  - DEEP VEIN THROMBOSIS [None]
  - PULMONARY EMBOLISM [None]
